FAERS Safety Report 20516292 (Version 1)
Quarter: 2022Q1

REPORT INFORMATION
  Report Type: Report from Study
  Country: GB (occurrence: GB)
  Receive Date: 20220225
  Receipt Date: 20220225
  Transmission Date: 20220424
  Serious: Yes (Death)
  Sender: FDA-Public Use
  Company Number: GB-NOVARTISPH-NVSC2022GB042765

PATIENT
  Age: 54 Year
  Sex: Female

DRUGS (1)
  1. COSENTYX [Suspect]
     Active Substance: SECUKINUMAB
     Indication: Psoriasis
     Dosage: 1 DOSAGE FORM (300/2 MG/ML), QMO
     Route: 065
     Dates: start: 20200903

REACTIONS (1)
  - Death [Fatal]

NARRATIVE: CASE EVENT DATE: 20220218
